FAERS Safety Report 5976203-1 (Version None)
Quarter: 2008Q4

REPORT INFORMATION
  Report Type: 
  Country: None (occurrence: None)
  Receive Date: 20081202
  Receipt Date: 20081126
  Transmission Date: 20090506
  Serious: Yes (Death)
  Sender: FDA-Public Use
  Company Number: US-ASTRAZENECA-2008AC03040

PATIENT
  Age: 16 Year
  Sex: Female

DRUGS (2)
  1. BUPIVACAINE [Suspect]
     Route: 008
  2. FENTANYL-100 [Suspect]
     Route: 008

REACTIONS (2)
  - DEATH [None]
  - MEDICATION ERROR [None]
